FAERS Safety Report 8538927-1 (Version None)
Quarter: 2012Q2

REPORT INFORMATION
  Report Type: 
  Country: None (occurrence: None)
  Receive Date: 20120416
  Receipt Date: 20090608
  Transmission Date: 20120825
  Serious: Yes (Other)
  Sender: FDA-Public Use
  Company Number: PHEH2009US03103

PATIENT
  Age: 82 Year
  Sex: Female

DRUGS (4)
  1. ATENOLOL [Suspect]
  2. ISORDIL [Concomitant]
  3. DIOVAN [Suspect]
  4. ISORDIL [Concomitant]

REACTIONS (4)
  - ASTHENIA [None]
  - FATIGUE [None]
  - DIZZINESS [None]
  - SYNCOPE [None]
